FAERS Safety Report 5670055-5 (Version None)
Quarter: 2008Q1

REPORT INFORMATION
  Report Type: 
  Country: None (occurrence: None)
  Receive Date: 20080317
  Receipt Date: 20080312
  Transmission Date: 20080703
  Serious: Yes (Hospitalization)
  Sender: FDA-Public Use
  Company Number: US-MERCK-0803USA01956

PATIENT
  Age: 86 Year
  Sex: Female

DRUGS (7)
  1. FOSAMAX [Suspect]
     Indication: FRACTURE
     Route: 048
  2. FOSAMAX [Suspect]
     Route: 048
  3. VITAMINS (UNSPECIFIED) [Concomitant]
     Route: 065
  4. PLAVIX [Concomitant]
     Route: 065
  5. ASPIRIN [Concomitant]
     Route: 065
  6. CALCIUM (UNSPECIFIED) AND VITAMIN D (UNSPECIFIED) [Concomitant]
     Route: 065
  7. FOSAMAX PLUS D [Suspect]
     Indication: FRACTURE
     Route: 065

REACTIONS (4)
  - CHOLELITHIASIS [None]
  - DRUG DOSE OMISSION [None]
  - FLUID RETENTION [None]
  - GASTROINTESTINAL DISORDER [None]
